FAERS Safety Report 6765925-0 (Version None)
Quarter: 2010Q2

REPORT INFORMATION
  Report Type: 
  Country: None (occurrence: None)
  Receive Date: 20100611
  Receipt Date: 20100604
  Transmission Date: 20101027
  Serious: Yes (Other)
  Sender: FDA-Public Use
  Company Number: DE-JNJCH-2010007174

PATIENT
  Sex: Male

DRUGS (2)
  1. ROGAINE [Suspect]
     Indication: ALOPECIA
     Dosage: TEXT:UNKNOWN
     Route: 061
     Dates: start: 20091001, end: 20100319
  2. ISOTRETINOIN [Concomitant]
     Indication: ACNE
     Dosage: TEXT:40MG TABLET ONCE DAILY
     Route: 048
     Dates: start: 20091029, end: 20100211

REACTIONS (2)
  - BLOOD CREATINE PHOSPHOKINASE INCREASED [None]
  - FATIGUE [None]
